FAERS Safety Report 14903197 (Version 3)
Quarter: 2018Q2

REPORT INFORMATION
  Report Type: Spontaneous
  Country: US (occurrence: US)
  Receive Date: 20180516
  Receipt Date: 20180628
  Transmission Date: 20180711
  Serious: No
  Sender: FDA-Public Use
  Company Number: PHEH2018US018871

PATIENT
  Sex: Male

DRUGS (3)
  1. LENVIMA [Concomitant]
     Active Substance: LENVATINIB
     Dosage: 10 MG, QD
     Route: 048
  2. LENVIMA [Concomitant]
     Active Substance: LENVATINIB
     Indication: RENAL CANCER
     Dosage: 18 MG, QD
     Route: 048
     Dates: start: 20180412
  3. AFINITOR [Suspect]
     Active Substance: EVEROLIMUS
     Indication: MALIGNANT NEOPLASM OF RENAL PELVIS
     Dosage: 5 MG, QD
     Route: 048

REACTIONS (4)
  - Blood potassium increased [Unknown]
  - Nephropathy [Unknown]
  - Malaise [Unknown]
  - Fatigue [Recovering/Resolving]
